FAERS Safety Report 15408035 (Version 1)
Quarter: 2018Q4

REPORT INFORMATION
  Report Type: Spontaneous
  Country: AT (occurrence: AT)
  Receive Date: 20180920
  Receipt Date: 20180920
  Transmission Date: 20190204
  Serious: Yes (Other)
  Sender: FDA-Public Use
  Company Number: AT-JNJFOC-20180906893

PATIENT
  Sex: Male

DRUGS (2)
  1. REGAINE MEN SOLUTION [Suspect]
     Active Substance: MINOXIDIL
     Route: 061
  2. REGAINE MEN SOLUTION [Suspect]
     Active Substance: MINOXIDIL
     Indication: PRODUCT USED FOR UNKNOWN INDICATION
     Dosage: YEARS AGO
     Route: 061

REACTIONS (2)
  - Intestinal operation [Unknown]
  - Cerebrovascular accident [Unknown]
